FAERS Safety Report 16441518 (Version 1)
Quarter: 2019Q2

REPORT INFORMATION
  Report Type: Spontaneous
  Country: US (occurrence: US)
  Receive Date: 20190617
  Receipt Date: 20190617
  Transmission Date: 20190711
  Serious: Yes (Other)
  Sender: FDA-Public Use
  Company Number: US-IMPAX LABORATORIES, LLC-2019-IPXL-01212

PATIENT

DRUGS (2)
  1. COLESTIPOL HYDROCHLORIDE. [Suspect]
     Active Substance: COLESTIPOL HYDROCHLORIDE
     Indication: IRRITABLE BOWEL SYNDROME
     Dosage: 1G, 1 DOSAGE FORM, QD
     Route: 048
  2. COLESTIPOL HYDROCHLORIDE. [Suspect]
     Active Substance: COLESTIPOL HYDROCHLORIDE
     Dosage: 2 DOSAGE FORM, QD
     Route: 048

REACTIONS (11)
  - Feeling abnormal [Unknown]
  - Faecaloma [Unknown]
  - Diarrhoea [Unknown]
  - Product use in unapproved indication [Unknown]
  - Constipation [Unknown]
  - Swelling face [Recovered/Resolved]
  - Photosensitivity reaction [Unknown]
  - Inappropriate schedule of product administration [Unknown]
  - Flank pain [Unknown]
  - Nephrolithiasis [Unknown]
  - Back pain [Unknown]

NARRATIVE: CASE EVENT DATE: 2016
